FAERS Safety Report 24781831 (Version 3)
Quarter: 2025Q3

REPORT INFORMATION
  Report Type: Spontaneous
  Country: EU (occurrence: EU)
  Receive Date: 20241227
  Receipt Date: 20250716
  Transmission Date: 20251021
  Serious: Yes (Hospitalization, Disabling)
  Sender: MYLAN
  Company Number: EU-STADA-01333772

PATIENT
  Age: 69 Year
  Sex: Female
  Weight: 83 kg

DRUGS (36)
  1. LENALIDOMIDE [Suspect]
     Active Substance: LENALIDOMIDE
     Indication: Diffuse large B-cell lymphoma
     Dates: start: 20211005, end: 20220204
  2. LENALIDOMIDE [Suspect]
     Active Substance: LENALIDOMIDE
     Route: 048
     Dates: start: 20211005, end: 20220204
  3. LENALIDOMIDE [Suspect]
     Active Substance: LENALIDOMIDE
     Route: 048
     Dates: start: 20211005, end: 20220204
  4. LENALIDOMIDE [Suspect]
     Active Substance: LENALIDOMIDE
     Dates: start: 20211005, end: 20220204
  5. DOXORUBICIN [Suspect]
     Active Substance: DOXORUBICIN
     Indication: Diffuse large B-cell lymphoma
     Dates: start: 20211006, end: 20220130
  6. DOXORUBICIN [Suspect]
     Active Substance: DOXORUBICIN
     Route: 042
     Dates: start: 20211006, end: 20220130
  7. DOXORUBICIN [Suspect]
     Active Substance: DOXORUBICIN
     Route: 042
     Dates: start: 20211006, end: 20220130
  8. DOXORUBICIN [Suspect]
     Active Substance: DOXORUBICIN
     Dates: start: 20211006, end: 20220130
  9. VINCRISTINE [Suspect]
     Active Substance: VINCRISTINE
     Indication: Diffuse large B-cell lymphoma
     Dates: start: 20211006, end: 20220130
  10. VINCRISTINE [Suspect]
     Active Substance: VINCRISTINE
     Route: 042
     Dates: start: 20211006, end: 20220130
  11. VINCRISTINE [Suspect]
     Active Substance: VINCRISTINE
     Route: 042
     Dates: start: 20211006, end: 20220130
  12. VINCRISTINE [Suspect]
     Active Substance: VINCRISTINE
     Dates: start: 20211006, end: 20220130
  13. PREDNISOLONE [Suspect]
     Active Substance: PREDNISOLONE
     Indication: Diffuse large B-cell lymphoma
     Dates: start: 20211006, end: 20220130
  14. PREDNISOLONE [Suspect]
     Active Substance: PREDNISOLONE
     Route: 042
     Dates: start: 20211006, end: 20220130
  15. PREDNISOLONE [Suspect]
     Active Substance: PREDNISOLONE
     Route: 042
     Dates: start: 20211006, end: 20220130
  16. PREDNISOLONE [Suspect]
     Active Substance: PREDNISOLONE
     Dates: start: 20211006, end: 20220130
  17. RITUXIMAB [Suspect]
     Active Substance: RITUXIMAB
     Indication: Diffuse large B-cell lymphoma
     Dates: start: 20211006, end: 20220130
  18. RITUXIMAB [Suspect]
     Active Substance: RITUXIMAB
     Route: 042
     Dates: start: 20211006, end: 20220130
  19. RITUXIMAB [Suspect]
     Active Substance: RITUXIMAB
     Route: 042
     Dates: start: 20211006, end: 20220130
  20. RITUXIMAB [Suspect]
     Active Substance: RITUXIMAB
     Dates: start: 20211006, end: 20220130
  21. CYCLOPHOSPHAMIDE [Suspect]
     Active Substance: CYCLOPHOSPHAMIDE
     Indication: Diffuse large B-cell lymphoma
     Dates: start: 20211006, end: 20220130
  22. CYCLOPHOSPHAMIDE [Suspect]
     Active Substance: CYCLOPHOSPHAMIDE
     Route: 042
     Dates: start: 20211006, end: 20220130
  23. CYCLOPHOSPHAMIDE [Suspect]
     Active Substance: CYCLOPHOSPHAMIDE
     Route: 042
     Dates: start: 20211006, end: 20220130
  24. CYCLOPHOSPHAMIDE [Suspect]
     Active Substance: CYCLOPHOSPHAMIDE
     Dates: start: 20211006, end: 20220130
  25. LERCANIDIPINE [Concomitant]
     Active Substance: LERCANIDIPINE
     Indication: Product used for unknown indication
  26. LERCANIDIPINE [Concomitant]
     Active Substance: LERCANIDIPINE
     Route: 065
  27. LERCANIDIPINE [Concomitant]
     Active Substance: LERCANIDIPINE
     Route: 065
  28. LERCANIDIPINE [Concomitant]
     Active Substance: LERCANIDIPINE
  29. EZETIMIBE\ROSUVASTATIN CALCIUM [Concomitant]
     Active Substance: EZETIMIBE\ROSUVASTATIN CALCIUM
     Indication: Product used for unknown indication
  30. EZETIMIBE\ROSUVASTATIN CALCIUM [Concomitant]
     Active Substance: EZETIMIBE\ROSUVASTATIN CALCIUM
     Route: 065
  31. EZETIMIBE\ROSUVASTATIN CALCIUM [Concomitant]
     Active Substance: EZETIMIBE\ROSUVASTATIN CALCIUM
     Route: 065
  32. EZETIMIBE\ROSUVASTATIN CALCIUM [Concomitant]
     Active Substance: EZETIMIBE\ROSUVASTATIN CALCIUM
  33. TAFASITAMAB [Concomitant]
     Active Substance: TAFASITAMAB
     Indication: Diffuse large B-cell lymphoma
     Dates: start: 20211005, end: 20220209
  34. TAFASITAMAB [Concomitant]
     Active Substance: TAFASITAMAB
     Route: 042
     Dates: start: 20211005, end: 20220209
  35. TAFASITAMAB [Concomitant]
     Active Substance: TAFASITAMAB
     Route: 042
     Dates: start: 20211005, end: 20220209
  36. TAFASITAMAB [Concomitant]
     Active Substance: TAFASITAMAB
     Dates: start: 20211005, end: 20220209

REACTIONS (1)
  - Endometrial adenocarcinoma [Recovered/Resolved]

NARRATIVE: CASE EVENT DATE: 20241021
